FAERS Safety Report 13261481 (Version 3)
Quarter: 2017Q1

REPORT INFORMATION
  Report Type: Spontaneous
  Country: JP (occurrence: JP)
  Receive Date: 20170222
  Receipt Date: 20170323
  Transmission Date: 20170428
  Serious: Yes (Hospitalization)
  Sender: FDA-Public Use
  Company Number: JP-PFIZER INC-2017074246

PATIENT
  Age: 44 Year
  Sex: Male

DRUGS (4)
  1. SLONNON [Suspect]
     Active Substance: ARGATROBAN
     Indication: VERTEBRAL ARTERY DISSECTION
     Dosage: UNK
  2. EDARAVONE [Suspect]
     Active Substance: EDARAVONE
     Indication: VERTEBRAL ARTERY DISSECTION
     Dosage: UNK
     Route: 065
  3. NIFEDIPINE. [Suspect]
     Active Substance: NIFEDIPINE
     Indication: HYPERTENSION
     Dosage: UNK
     Route: 065
  4. CLOPIDOGREL SULFATE [Suspect]
     Active Substance: CLOPIDOGREL BISULFATE
     Indication: VERTEBRAL ARTERY DISSECTION
     Dosage: 75 MG, 1X/DAY
     Route: 048

REACTIONS (2)
  - Vertebral artery dissection [Recovering/Resolving]
  - Condition aggravated [Recovering/Resolving]
